FAERS Safety Report 8442860-3 (Version None)
Quarter: 2012Q2

REPORT INFORMATION
  Report Type: 
  Country: None (occurrence: None)
  Receive Date: 20120615
  Receipt Date: 20120607
  Transmission Date: 20120825
  Serious: Yes (Other)
  Sender: FDA-Public Use
  Company Number: US-TEVA-342018USA

PATIENT
  Sex: Male

DRUGS (8)
  1. AZELASTINE HCL [Concomitant]
     Indication: HYPERSENSITIVITY
  2. DIAZEPAM [Concomitant]
     Indication: ANXIETY
     Route: 048
  3. FLUTICASONE PROPIONATE [Concomitant]
     Indication: RHINITIS ALLERGIC
  4. VITAMIN D [Concomitant]
     Indication: SUPPLEMENTATION THERAPY
  5. PROAIR HFA [Suspect]
     Indication: ASTHMA
  6. LANSOPRAZOLE [Concomitant]
     Indication: GASTROOESOPHAGEAL REFLUX DISEASE
     Route: 048
  7. CELECOXIB [Concomitant]
     Indication: ARTHRITIS
     Route: 048
  8. GUAIFENESIN [Concomitant]
     Indication: PRODUCTIVE COUGH
     Dosage: 1 TABLET

REACTIONS (2)
  - BRONCHOSPASM PARADOXICAL [None]
  - CHEST DISCOMFORT [None]
